FAERS Safety Report 20761881 (Version 1)
Quarter: 2022Q2

REPORT INFORMATION
  Report Type: Spontaneous
  Country: BE (occurrence: BE)
  Receive Date: 20220428
  Receipt Date: 20220428
  Transmission Date: 20220720
  Serious: Yes (Death, Life-Threatening, Other)
  Sender: FDA-Public Use
  Company Number: BE-AMGEN-BELSP2022069403

PATIENT

DRUGS (10)
  1. FILGRASTIM [Suspect]
     Active Substance: FILGRASTIM
     Indication: Prophylaxis
     Route: 065
  2. PEGFILGRASTIM [Suspect]
     Active Substance: PEGFILGRASTIM
     Indication: Prophylaxis
     Route: 065
  3. RITUXIMAB [Concomitant]
     Active Substance: RITUXIMAB
     Dosage: 375 MILLIGRAM/SQ. METER, Q3WK
  4. CYTARABINE [Concomitant]
     Active Substance: CYTARABINE
     Dosage: 2 GRAM PER SQUARE METRE, Q3WK
  5. CISPLATIN [Concomitant]
     Active Substance: CISPLATIN
     Dosage: 100 GRAM PER SQUARE METRE, Q3WK
  6. OXALIPLATIN [Concomitant]
     Active Substance: OXALIPLATIN
     Dosage: 130 GRAM PER SQUARE METRE, Q3WK
  7. IBRUTINIB [Concomitant]
     Active Substance: IBRUTINIB
     Dosage: 420 MILLIGRAM, QD
     Route: 048
  8. DEXAMETHASONE [Concomitant]
     Active Substance: DEXAMETHASONE
     Dosage: 40 MILLIGRAM
  9. SULFAMETHOXAZOLE AND TRIMETHOPRIM [Concomitant]
     Active Substance: SULFAMETHOXAZOLE\TRIMETHOPRIM
  10. VALACYCLOVIR HYDROCHLORIDE [Concomitant]
     Active Substance: VALACYCLOVIR HYDROCHLORIDE

REACTIONS (33)
  - Diffuse large B-cell lymphoma [Fatal]
  - Chronic lymphocytic leukaemia [Fatal]
  - Toxicity to various agents [Fatal]
  - Venoocclusive disease [Fatal]
  - Neutropenia [Recovered/Resolved]
  - Bacterial sepsis [Unknown]
  - Thrombocytopenia [Recovered/Resolved]
  - Rash [Recovered/Resolved]
  - Febrile neutropenia [Recovered/Resolved]
  - Cardiac disorder [Unknown]
  - Atrial fibrillation [Recovered/Resolved]
  - Hypokalaemia [Unknown]
  - Renal failure [Recovered/Resolved]
  - Aplasia [Unknown]
  - Hepatitis [Recovered/Resolved]
  - Hepatobiliary disease [Unknown]
  - Neuropathy peripheral [Unknown]
  - Neoplasm [Unknown]
  - Gastric haemorrhage [Recovered/Resolved]
  - Prostate infection [Recovered/Resolved]
  - Infection [Unknown]
  - Hyponatraemia [Recovered/Resolved]
  - Hypophosphataemia [Recovered/Resolved]
  - Acute coronary syndrome [Unknown]
  - Multiple organ dysfunction syndrome [Unknown]
  - Abdominal pain upper [Recovered/Resolved]
  - Anaemia [Unknown]
  - Bronchitis [Unknown]
  - Nausea [Recovered/Resolved]
  - Vomiting [Recovered/Resolved]
  - Hypocalcaemia [Unknown]
  - Angiopathy [Recovered/Resolved]
  - Diarrhoea [Unknown]
